FAERS Safety Report 7713346-6 (Version None)
Quarter: 2011Q3

REPORT INFORMATION
  Report Type: 
  Country: None (occurrence: None)
  Receive Date: 20110826
  Receipt Date: 20110811
  Transmission Date: 20111222
  Serious: Yes (Other)
  Sender: FDA-Public Use
  Company Number: US-BAYER-2011-072301

PATIENT
  Sex: Female

DRUGS (1)
  1. ALEVE (CAPLET) [Suspect]
     Indication: ANALGESIC THERAPY
     Dosage: COUNT SIZE 50S
     Route: 048
     Dates: start: 20091001

REACTIONS (3)
  - NAUSEA [None]
  - RECTAL HAEMORRHAGE [None]
  - ABDOMINAL PAIN UPPER [None]
